FAERS Safety Report 6171348-8 (Version None)
Quarter: 2009Q2

REPORT INFORMATION
  Report Type: 
  Country: None (occurrence: None)
  Receive Date: 20090429
  Receipt Date: 20090427
  Transmission Date: 20091009
  Serious: Yes (Life-Threatening)
  Sender: FDA-Public Use
  Company Number: AU-BRISTOL-MYERS SQUIBB COMPANY-14603005

PATIENT
  Age: 79 Year
  Sex: Male

DRUGS (2)
  1. MONOPLUS TABS [Suspect]
     Dosage: MONOPLUS NOS
     Route: 048
     Dates: end: 20070620
  2. CELEBREX [Suspect]
     Dosage: CAPS
     Route: 048
     Dates: start: 20070601, end: 20070620

REACTIONS (3)
  - CIRCULATORY COLLAPSE [None]
  - COMA [None]
  - RENAL FAILURE ACUTE [None]
